FAERS Safety Report 8265732-6 (Version None)
Quarter: 2012Q2

REPORT INFORMATION
  Report Type: 
  Country: None (occurrence: None)
  Receive Date: 20120406
  Receipt Date: 20120327
  Transmission Date: 20120825
  Serious: Yes (Hospitalization, Other)
  Sender: FDA-Public Use
  Company Number: JP-UCBSA-054552

PATIENT
  Age: 82 Year
  Sex: Male

DRUGS (6)
  1. ETHAMBUTOL HYDROCHLORIDE [Concomitant]
     Route: 048
     Dates: end: 20120327
  2. CLARITHROMYCIN [Concomitant]
     Route: 048
     Dates: end: 20120327
  3. RIFAMPICIN [Concomitant]
     Route: 048
     Dates: end: 20120327
  4. XYZAL [Suspect]
     Route: 048
     Dates: start: 20120228, end: 20120326
  5. CODEINE PHOSPHATE HYDRATE [Concomitant]
     Dosage: DOSAGE FORM:POR
     Route: 048
     Dates: end: 20120327
  6. NASONEX [Concomitant]
     Route: 045
     Dates: start: 20120228, end: 20120327

REACTIONS (1)
  - PLATELET COUNT DECREASED [None]
